FAERS Safety Report 8965551 (Version 1)
Quarter: 2012Q4

REPORT INFORMATION
  Report Type: 
  Country: TW (occurrence: None)
  Receive Date: 20121205
  Receipt Date: 20121205
  Transmission Date: 20130627
  Serious: Yes (Life-Threatening, Hospitalization)
  Sender: FDA-Public Use
  Company Number: DAV-AE-LOR-12-02

PATIENT
  Age: 30 Year
  Sex: Female

DRUGS (1)
  1. LORAZEPAM [Suspect]

REACTIONS (22)
  - Overdose [None]
  - Necrosis [None]
  - Cardiotoxicity [None]
  - Suicide attempt [None]
  - Myoclonus [None]
  - Electrocardiogram QRS complex prolonged [None]
  - Electrocardiogram QRS complex abnormal [None]
  - Respiratory distress [None]
  - Somnolence [None]
  - Confusional state [None]
  - Tachycardia [None]
  - Blood pressure decreased [None]
  - Oxygen saturation decreased [None]
  - Leukocytosis [None]
  - Serotonin syndrome [None]
  - Agitation [None]
  - Blood creatine phosphokinase increased [None]
  - Blood creatinine increased [None]
  - Depressed level of consciousness [None]
  - Alanine aminotransferase increased [None]
  - Akathisia [None]
  - Choreoathetosis [None]
